FAERS Safety Report 6384526-X (Version None)
Quarter: 2009Q3

REPORT INFORMATION
  Report Type: 
  Country: None (occurrence: None)
  Receive Date: 20090928
  Receipt Date: 20090608
  Transmission Date: 20100115
  Serious: Yes (Life-Threatening)
  Sender: FDA-Public Use
  Company Number: ADR3972009

PATIENT
  Age: 75 Year
  Sex: Female

DRUGS (8)
  1. SIMVASTATIN FILM-COATED            (MFR: UNKNOWN) [Suspect]
     Indication: HYPERLIPIDAEMIA
     Dosage: 40 MG ORAL
     Route: 048
     Dates: start: 20080501
  2. FALITHROM (PHENPROCOUMON) [Concomitant]
  3. ENOXAPARIN SODIUM [Concomitant]
  4. ISCOVER (CLOPIDOGREL SULPHATE) [Concomitant]
  5. OMEPRAZOLE [Concomitant]
  6. METOHEXAL (METOPROLOL TARTRATE) [Concomitant]
  7. RAMIPRIL [Concomitant]
  8. THIAMAZOLE [Concomitant]

REACTIONS (8)
  - CONFUSIONAL STATE [None]
  - DIARRHOEA [None]
  - DRUG INTERACTION [None]
  - GASTRIC ULCER HAEMORRHAGE [None]
  - HYPOTENSION [None]
  - NAUSEA [None]
  - PALLOR [None]
  - VOMITING [None]
